FAERS Safety Report 10017876 (Version 1)
Quarter: 2014Q1

REPORT INFORMATION
  Report Type: Spontaneous
  Country: KR (occurrence: KR)
  Receive Date: 20140318
  Receipt Date: 20140318
  Transmission Date: 20141002
  Serious: Yes (Other)
  Sender: FDA-Public Use
  Company Number: KR-BRISTOL-MYERS SQUIBB COMPANY-20417762

PATIENT
  Sex: 0

DRUGS (1)
  1. BARACLUDE [Suspect]

REACTIONS (1)
  - Aplastic anaemia [Unknown]
